FAERS Safety Report 11867742 (Version 6)
Quarter: 2016Q2

REPORT INFORMATION
  Report Type: Spontaneous
  Country: US (occurrence: US)
  Receive Date: 20151224
  Receipt Date: 20160418
  Transmission Date: 20160815
  Serious: Yes (Other)
  Sender: FDA-Public Use
  Company Number: US-SA-2015SA219618

PATIENT
  Age: 55 Year
  Sex: Male
  Weight: 109.7 kg

DRUGS (14)
  1. AUBAGIO [Suspect]
     Active Substance: TERIFLUNOMIDE
     Indication: MULTIPLE SCLEROSIS
     Route: 048
  2. ADDERALL [Concomitant]
     Active Substance: AMPHETAMINE ASPARTATE\AMPHETAMINE SULFATE\DEXTROAMPHETAMINE SACCHARATE\DEXTROAMPHETAMINE SULFATE
  3. LOSARTAN POTASSIUM. [Concomitant]
     Active Substance: LOSARTAN POTASSIUM
  4. METFORMIN HYDROCHLORIDE. [Concomitant]
     Active Substance: METFORMIN HYDROCHLORIDE
  5. OMEPRAZOLE. [Concomitant]
     Active Substance: OMEPRAZOLE
  6. AMBIEN [Concomitant]
     Active Substance: ZOLPIDEM TARTRATE
  7. ASPIRIN. [Concomitant]
     Active Substance: ASPIRIN
     Dosage: LOW DOSE
  8. TOUJEO [Concomitant]
     Active Substance: INSULIN GLARGINE
  9. ARIPIPRAZOLE. [Concomitant]
     Active Substance: ARIPIPRAZOLE
  10. CHANTIX [Concomitant]
     Active Substance: VARENICLINE TARTRATE
  11. TRULICITY [Suspect]
     Active Substance: DULAGLUTIDE
     Route: 065
  12. LYRICA [Concomitant]
     Active Substance: PREGABALIN
  13. FARXIGA [Concomitant]
     Active Substance: DAPAGLIFLOZIN PROPANEDIOL
  14. SOLOSTAR [Concomitant]
     Active Substance: DEVICE

REACTIONS (20)
  - Impaired driving ability [Unknown]
  - Onychomadesis [Unknown]
  - Balance disorder [Unknown]
  - Diabetes mellitus [Unknown]
  - Joint injury [Unknown]
  - Peripheral coldness [Unknown]
  - Neuropathy peripheral [Unknown]
  - Fall [Unknown]
  - Impaired work ability [Unknown]
  - Nasal congestion [Unknown]
  - Onychomycosis [Unknown]
  - Fatigue [Unknown]
  - Chest injury [Unknown]
  - Hyperhidrosis [Unknown]
  - Melanoderma [Unknown]
  - Optic neuritis [Unknown]
  - Glycosylated haemoglobin increased [Unknown]
  - Constipation [Unknown]
  - Anxiety [Unknown]
  - Asthenia [Unknown]
